FAERS Safety Report 7354413-9 (Version None)
Quarter: 2011Q1

REPORT INFORMATION
  Report Type: 
  Country: None (occurrence: None)
  Receive Date: 20110316
  Receipt Date: 20110304
  Transmission Date: 20110831
  Serious: Yes (Other)
  Sender: FDA-Public Use
  Company Number: PHHY2011JP18627

PATIENT
  Age: 8 Year
  Sex: Male

DRUGS (2)
  1. SIMULECT [Suspect]
     Indication: TRANSPLANT
     Dosage: 10 MG
     Route: 042
     Dates: start: 20110302
  2. PROGRAF [Suspect]
     Indication: TRANSPLANT

REACTIONS (2)
  - BLOOD PRESSURE DECREASED [None]
  - TOXIC ENCEPHALOPATHY [None]
